FAERS Safety Report 11164148 (Version 1)
Quarter: 2015Q2

REPORT INFORMATION
  Report Type: Spontaneous
  Country: US (occurrence: US)
  Receive Date: 20150604
  Receipt Date: 20150604
  Transmission Date: 20150821
  Serious: No
  Sender: FDA-Public Use
  Company Number: US-JNJFOC-20150517904

PATIENT
  Age: 57 Year
  Sex: Male
  Weight: 81.65 kg

DRUGS (2)
  1. DURAGESIC [Suspect]
     Active Substance: FENTANYL
     Indication: BACK INJURY
     Route: 062
  2. DURAGESIC [Suspect]
     Active Substance: FENTANYL
     Indication: DIABETIC NEUROPATHY
     Route: 062

REACTIONS (3)
  - Underdose [Unknown]
  - Product quality issue [Unknown]
  - Wrong technique in drug usage process [Unknown]

NARRATIVE: CASE EVENT DATE: 20150525
